FAERS Safety Report 5051935-0 (Version None)
Quarter: 2006Q3

REPORT INFORMATION
  Report Type: 
  Country: None (occurrence: None)
  Receive Date: 20060711
  Receipt Date: 20060620
  Transmission Date: 20061208
  Serious: Yes (Other)
  Sender: FDA-Public Use
  Company Number: US200606005936

PATIENT
  Age: 90 Year
  Sex: Female

DRUGS (6)
  1. HUMALOG [Suspect]
     Indication: DIABETES MELLITUS
     Dosage: SEE IMAGE
  2. HUMULIN N [Suspect]
     Indication: DIABETES MELLITUS
     Dosage: SEE IMAGE
  3. HUMULIN R [Suspect]
     Indication: DIABETES MELLITUS
     Dosage: SUB. PUMP
  4. ILETIN [Suspect]
     Indication: DIABETES MELLITUS
  5. HUMALOG PEN [Suspect]
     Indication: DIABETES MELLITUS
     Dates: start: 20060619, end: 20060620
  6. HUMALOG PEN [Concomitant]

REACTIONS (9)
  - BLOOD GLUCOSE DECREASED [None]
  - BLOOD GLUCOSE FLUCTUATION [None]
  - COMA [None]
  - DEPRESSED LEVEL OF CONSCIOUSNESS [None]
  - EYE HAEMORRHAGE [None]
  - EYE INFECTION [None]
  - INJECTION SITE NODULE [None]
  - PHARMACEUTICAL PRODUCT COMPLAINT [None]
  - VISUAL ACUITY REDUCED [None]
